FAERS Safety Report 9902719 (Version 3)
Quarter: 2014Q2

REPORT INFORMATION
  Report Type: Report from Study
  Country: CA (occurrence: CA)
  Receive Date: 20140217
  Receipt Date: 20140509
  Transmission Date: 20141212
  Serious: Yes (Hospitalization, Other)
  Sender: FDA-Public Use
  Company Number: CA-JNJFOC-20140207244

PATIENT
  Age: 52 Year
  Sex: Male
  Weight: 68.3 kg

DRUGS (5)
  1. REMICADE [Suspect]
     Indication: CROHN^S DISEASE
     Route: 042
     Dates: start: 20131227
  2. REMICADE [Suspect]
     Indication: CROHN^S DISEASE
     Route: 042
     Dates: start: 20130712
  3. PREDNISONE [Concomitant]
     Route: 048
  4. LYRICA [Concomitant]
     Route: 065
  5. VOLTAREN [Concomitant]
     Route: 065

REACTIONS (3)
  - Small intestine carcinoma [Unknown]
  - Arthralgia [Recovering/Resolving]
  - Joint swelling [Recovering/Resolving]
